FAERS Safety Report 19744208 (Version 1)
Quarter: 2021Q3

REPORT INFORMATION
  Report Type: Spontaneous
  Country: US (occurrence: US)
  Receive Date: 20210823
  Receipt Date: 20210823
  Transmission Date: 20211014
  Serious: No
  Sender: FDA-Public Use
  Company Number: None

PATIENT
  Age: 96 Year
  Sex: Male
  Weight: 72.12 kg

DRUGS (1)
  1. PREGABALIN (PREGABALIN 75MG CAP, ORAL) [Suspect]
     Active Substance: PREGABALIN
     Indication: PAIN
     Route: 048
     Dates: start: 20210601, end: 20210628

REACTIONS (7)
  - Urinary tract infection [None]
  - Disorientation [None]
  - Culture urine positive [None]
  - Confusional state [None]
  - Mental status changes [None]
  - Staphylococcus test positive [None]
  - Agitation [None]

NARRATIVE: CASE EVENT DATE: 20210628
